FAERS Safety Report 7654227-6 (Version None)
Quarter: 2011Q3

REPORT INFORMATION
  Report Type: 
  Country: None (occurrence: None)
  Receive Date: 20110802
  Receipt Date: 20110802
  Transmission Date: 20111222
  Serious: Yes (Other)
  Sender: FDA-Public Use
  Company Number: None

PATIENT
  Sex: Male
  Weight: 88.3 kg

DRUGS (2)
  1. TOPAMAX [Suspect]
     Indication: EPILEPSY
     Dosage: 1 BID PO
     Route: 048
     Dates: start: 20091016
  2. LAMICTAL [Suspect]
     Indication: AUTISM
     Dosage: 3 BID PO
     Route: 048

REACTIONS (1)
  - CONVULSION [None]
